FAERS Safety Report 15440757 (Version 1)
Quarter: 2018Q3

REPORT INFORMATION
  Report Type: Spontaneous
  Country: US (occurrence: US)
  Receive Date: 20180928
  Receipt Date: 20180928
  Transmission Date: 20181010
  Serious: No
  Sender: FDA-Public Use
  Company Number: US-NOVOPROD-609768

PATIENT
  Age: 54 Year
  Sex: Female

DRUGS (4)
  1. OZEMPIC [Suspect]
     Active Substance: SEMAGLUTIDE
     Dosage: 1.0 MG, QW
     Route: 058
     Dates: start: 2018, end: 2018
  2. OZEMPIC [Suspect]
     Active Substance: SEMAGLUTIDE
     Dosage: 0.5 MG, QW
     Route: 058
     Dates: start: 2018
  3. OZEMPIC [Suspect]
     Active Substance: SEMAGLUTIDE
     Indication: TYPE 1 DIABETES MELLITUS
     Dosage: 0.5 MG, QW
     Route: 058
     Dates: start: 2018, end: 2018
  4. FIASP [Concomitant]
     Active Substance: INSULIN ASPART
     Indication: TYPE 1 DIABETES MELLITUS
     Dosage: UNK
     Route: 058
     Dates: start: 2018

REACTIONS (6)
  - Nausea [Not Recovered/Not Resolved]
  - Eructation [Not Recovered/Not Resolved]
  - Chest discomfort [Not Recovered/Not Resolved]
  - Dyspnoea [Not Recovered/Not Resolved]
  - Off label use [Not Recovered/Not Resolved]
  - Diarrhoea [Not Recovered/Not Resolved]

NARRATIVE: CASE EVENT DATE: 2018
